FAERS Safety Report 5448253-5 (Version None)
Quarter: 2007Q3

REPORT INFORMATION
  Report Type: 
  Country: None (occurrence: None)
  Receive Date: 20070911
  Receipt Date: 20070904
  Transmission Date: 20080115
  Serious: Yes (Hospitalization, Other)
  Sender: FDA-Public Use
  Company Number: PHMT2007CA01574

PATIENT
  Age: 1 Year
  Sex: Male

DRUGS (10)
  1. TEGRETOL [Suspect]
     Indication: EPILEPSY
     Dosage: 50 MG, BID
     Route: 048
     Dates: start: 20070705, end: 20070709
  2. IZONIAZID [Suspect]
     Indication: MENINGITIS TUBERCULOUS
     Dosage: 15 MG/KG/DAY
     Route: 048
     Dates: start: 20070703, end: 20070709
  3. IZONIAZID [Suspect]
     Dosage: 10 MG/KG/DAY
     Route: 048
     Dates: start: 20070709, end: 20070721
  4. IZONIAZID [Suspect]
     Dosage: 150 MG, QD
     Route: 048
     Dates: start: 20070721
  5. PYRAZINAMIDE [Suspect]
     Indication: MENINGITIS TUBERCULOUS
     Dosage: 40 MG/KG/DAY
     Route: 048
     Dates: start: 20070703, end: 20070709
  6. PYRAZINAMIDE [Suspect]
     Dosage: 20MG/KG/DAY
     Route: 048
     Dates: start: 20070709, end: 20070721
  7. PYRAZINAMIDE [Suspect]
     Dosage: 400 MG, QD
     Route: 048
     Dates: start: 20070721
  8. RIFAMPICIN [Suspect]
     Indication: MENINGITIS TUBERCULOUS
     Dosage: 20MG/KG/DAY
     Route: 048
     Dates: start: 20070703, end: 20070709
  9. RIFAMPICIN [Suspect]
     Dosage: 10MG/KG/DAY
     Route: 048
     Dates: start: 20070709, end: 20070721
  10. RIFAMPICIN [Suspect]
     Dosage: 200 MG, QD
     Route: 048
     Dates: start: 20070721

REACTIONS (4)
  - DRUG INTERACTION [None]
  - HEPATOTOXICITY [None]
  - STATUS EPILEPTICUS [None]
  - VOMITING [None]
